FAERS Safety Report 8842889 (Version 2)
Quarter: 2012Q4

REPORT INFORMATION
  Report Type: 
  Country: SI (occurrence: SI)
  Receive Date: 20121016
  Receipt Date: 20121028
  Transmission Date: 20130627
  Serious: Yes (Death)
  Sender: FDA-Public Use
  Company Number: SI-CELGENEUS-261-21880-12101303

PATIENT
  Age: 47 Year

DRUGS (1)
  1. REVLIMID [Suspect]
     Indication: MULTIPLE MYELOMA
     Route: 048
     Dates: start: 2009

REACTIONS (3)
  - Graft versus host disease in skin [Fatal]
  - Graft versus host disease [Fatal]
  - Plasma cell myeloma [Fatal]
